FAERS Safety Report 6232896-5 (Version None)
Quarter: 2009Q2

REPORT INFORMATION
  Report Type: 
  Country: None (occurrence: None)
  Receive Date: 20090617
  Receipt Date: 20090610
  Transmission Date: 20091009
  Serious: Yes (Hospitalization, Other)
  Sender: FDA-Public Use
  Company Number: US-AVENTIS-200915115US

PATIENT
  Sex: Female

DRUGS (3)
  1. LANTUS [Suspect]
     Indication: TYPE 2 DIABETES MELLITUS
     Route: 058
     Dates: start: 20070101
  2. AVANDAMET [Concomitant]
     Dosage: DOSE: UNK
  3. NOVOLOG [Concomitant]
     Dosage: DOSE: SLIDING SCALE

REACTIONS (7)
  - BLOOD GLUCOSE INCREASED [None]
  - CARDIAC OPERATION [None]
  - HYPOGLYCAEMIA [None]
  - INJECTION SITE PAIN [None]
  - OVERDOSE [None]
  - PULMONARY OEDEMA [None]
  - STAPHYLOCOCCAL INFECTION [None]
